FAERS Safety Report 6293626-4 (Version None)
Quarter: 2009Q3

REPORT INFORMATION
  Report Type: 
  Country: None (occurrence: None)
  Receive Date: 20090729
  Receipt Date: 20090721
  Transmission Date: 20100115
  Serious: Yes (Other)
  Sender: FDA-Public Use
  Company Number: 2009US002829

PATIENT
  Age: 14 Month
  Sex: Female
  Weight: 7 kg

DRUGS (1)
  1. AMBISOME [Suspect]
     Indication: SEPTIC SHOCK
     Dates: start: 20090702, end: 20090713

REACTIONS (1)
  - ERYTHEMA MULTIFORME [None]
